FAERS Safety Report 9464555 (Version 1)
Quarter: 2013Q3

REPORT INFORMATION
  Report Type: Spontaneous
  Country: US (occurrence: US)
  Receive Date: 20130819
  Receipt Date: 20130819
  Transmission Date: 20140515
  Serious: No
  Sender: FDA-Public Use
  Company Number: US-BAYER-2013-098799

PATIENT
  Sex: Female

DRUGS (2)
  1. CIPRO [Suspect]
     Indication: SKIN INFECTION
     Dosage: 500 MG, BID
     Dates: start: 20130807
  2. CIPRO [Suspect]
     Indication: ESCHERICHIA INFECTION

REACTIONS (1)
  - Diarrhoea [Not Recovered/Not Resolved]
